FAERS Safety Report 9128937 (Version 3)
Quarter: 2013Q3

REPORT INFORMATION
  Report Type: Spontaneous
  Country: JP (occurrence: JP)
  Receive Date: 20130228
  Receipt Date: 20130701
  Transmission Date: 20140515
  Serious: Yes (Hospitalization)
  Sender: FDA-Public Use
  Company Number: JP-ABBOTT-13X-087-1055453-00

PATIENT
  Age: 63 Year
  Sex: Female

DRUGS (9)
  1. CLARITHROMYCIN [Suspect]
     Indication: HELICOBACTER INFECTION
     Dosage: 1 CARD (0.5 CARD, 2 IN 1 D)
     Route: 048
     Dates: start: 20130122, end: 20130129
  2. AMOXICILLIN [Suspect]
     Indication: HELICOBACTER INFECTION
     Dosage: 1 CARD (0.5 CARD, 2 IN 1 D)
     Route: 048
     Dates: start: 20130122, end: 20130129
  3. LANSOPRAZOLE [Suspect]
     Indication: HELICOBACTER INFECTION
     Dosage: 1 CARD (0.5 CARD, 2 IN 1 D)
     Route: 048
     Dates: start: 20130122, end: 20130129
  4. LANSOPRAZOLE [Suspect]
     Indication: PRODUCT USED FOR UNKNOWN INDICATION
     Route: 048
     Dates: start: 20130205
  5. ULCERLMIN [Suspect]
     Indication: PRODUCT USED FOR UNKNOWN INDICATION
     Route: 048
     Dates: start: 20130207
  6. GASTER [Suspect]
     Indication: PRODUCT USED FOR UNKNOWN INDICATION
     Route: 042
     Dates: start: 201302, end: 201302
  7. GASTER [Suspect]
     Route: 042
     Dates: start: 201302
  8. OMEPRAL [Suspect]
     Indication: PRODUCT USED FOR UNKNOWN INDICATION
     Route: 065
     Dates: start: 201302, end: 201302
  9. BIOFERMIN R [Concomitant]
     Indication: PROPHYLAXIS AGAINST GASTROINTESTINAL ULCER
     Route: 048
     Dates: start: 20130122, end: 20130129

REACTIONS (8)
  - Aphagia [Recovering/Resolving]
  - Oesophageal pain [Recovering/Resolving]
  - Feeling abnormal [Recovering/Resolving]
  - Stomatitis [Recovered/Resolved]
  - Glossitis [Recovered/Resolved]
  - Cheilitis [Recovered/Resolved]
  - Hypoaesthesia [Recovering/Resolving]
  - Dizziness [Recovering/Resolving]
